FAERS Safety Report 4550624-6 (Version None)
Quarter: 2004Q4

REPORT INFORMATION
  Report Type: 
  Country: None (occurrence: None)
  Receive Date: 20041227
  Receipt Date: 20040908
  Transmission Date: 20050328
  Serious: No
  Sender: FDA-Public Use
  Company Number: 04P-163-0272588-00

PATIENT
  Age: 65 Year
  Sex: Female

DRUGS (9)
  1. HUMIRA [Suspect]
     Indication: RHEUMATOID ARTHRITIS
     Dosage: 40 MG, 1 IN 2 WK, SUBCUTANEOUS
     Route: 058
     Dates: start: 20040601, end: 20040801
  2. HUMIRA [Suspect]
     Indication: RHEUMATOID ARTHRITIS
     Dosage: 40 MG, 1 IN 2 WK, SUBCUTANEOUS
     Route: 058
     Dates: start: 20040801
  3. PREDNISONE [Concomitant]
  4. CRESTOR [Concomitant]
  5. AMLODIPINE BESYLATE [Concomitant]
  6. ESOMEPRAZOLE [Concomitant]
  7. ATENOLOL [Concomitant]
  8. NAPROXEN SODIUM [Concomitant]
  9. TRIAM HCTZ [Concomitant]

REACTIONS (3)
  - COUGH [None]
  - DRUG EFFECT DECREASED [None]
  - NASOPHARYNGITIS [None]
